FAERS Safety Report 9198926 (Version 1)
Quarter: 2013Q1

REPORT INFORMATION
  Report Type: Spontaneous
  Country: GB (occurrence: None)
  Receive Date: 20130326
  Receipt Date: 20130326
  Transmission Date: 20140127
  Serious: Yes (Disabling, Other)
  Sender: FDA-Public Use
  Company Number: E2B_00000678

PATIENT
  Age: 63 Year
  Sex: Male

DRUGS (3)
  1. SIMVASTATIN [Suspect]
     Indication: PROPHYLAXIS
     Dosage: 1 IN 1 D
     Route: 048
     Dates: start: 20130222, end: 20130227
  2. ASPIRIN [Concomitant]
  3. PARACETAMOL [Concomitant]

REACTIONS (4)
  - Asthenia [None]
  - Lethargy [None]
  - Photophobia [None]
  - Procedural pain [None]
